FAERS Safety Report 11075325 (Version 2)
Quarter: 2015Q3

REPORT INFORMATION
  Report Type: Report from Study
  Country: JP (occurrence: JP)
  Receive Date: 20150429
  Receipt Date: 20150804
  Transmission Date: 20151125
  Serious: Yes (Hospitalization)
  Sender: FDA-Public Use
  Company Number: JP-PFIZER INC-2014155954

PATIENT
  Age: 52 Year
  Sex: Female
  Weight: 53.6 kg

DRUGS (13)
  1. DEPAS [Concomitant]
     Active Substance: ETIZOLAM
     Dosage: 0.5 MG, 1X/DAY
     Route: 048
     Dates: start: 20140514, end: 20140608
  2. PURSENNID /00142207/ [Concomitant]
     Active Substance: SENNOSIDES A AND B
     Dosage: 24 MG, 1X/DAY
     Route: 048
     Dates: start: 20140516, end: 20140608
  3. NOVAMIN /00013301/ [Concomitant]
     Active Substance: PROCHLORPERAZINE MALEATE
     Dosage: 5 MG, 3X/DAY
     Route: 048
     Dates: start: 20140519, end: 20140608
  4. RESTAMIN KOWA [Concomitant]
     Dosage: UNK
     Route: 061
     Dates: start: 20140514, end: 20140522
  5. ANTEBATE [Concomitant]
     Active Substance: BETAMETHASONE DIPROPIONATE
     Dosage: UNK
     Route: 061
     Dates: start: 20140514, end: 20140522
  6. PRIMPERAN [Concomitant]
     Active Substance: METOCLOPRAMIDE HYDROCHLORIDE
     Dosage: 5 MG, 3X/DAY
     Route: 048
     Dates: start: 20140516, end: 20140608
  7. XALKORI [Suspect]
     Active Substance: CRIZOTINIB
     Indication: NON-SMALL CELL LUNG CANCER
     Dosage: 250 MG, 2X/DAY
     Route: 048
     Dates: start: 20140515, end: 20140604
  8. DECADRON [Concomitant]
     Active Substance: DEXAMETHASONE
     Dosage: 3 MG, 1X/DAY
     Route: 048
     Dates: start: 20140527, end: 20140528
  9. MAGMITT [Concomitant]
     Active Substance: MAGNESIUM OXIDE
     Dosage: 500 MG, 3X/DAY
     Route: 048
     Dates: start: 20140516, end: 20140608
  10. NASEA OD [Concomitant]
     Dosage: 0.1 MG, 1X/DAY
     Route: 048
     Dates: start: 20140527, end: 20140531
  11. LENDORMIN [Concomitant]
     Active Substance: BROTIZOLAM
     Dosage: 0.25 MG, 1X/DAY
     Route: 048
     Dates: start: 20140529
  12. ALLEGRA [Concomitant]
     Active Substance: FEXOFENADINE HYDROCHLORIDE
     Dosage: 60 MG, 2X/DAY
     Route: 048
     Dates: start: 20140514, end: 20140521
  13. NAUZELIN [Concomitant]
     Active Substance: DOMPERIDONE
     Dosage: 60 MG, 2X/DAY
     Route: 054
     Dates: start: 20140520, end: 20140602

REACTIONS (2)
  - Oesophagitis [Recovering/Resolving]
  - Hepatitis acute [Recovered/Resolved]

NARRATIVE: CASE EVENT DATE: 20140520
